FAERS Safety Report 5145839-2 (Version None)
Quarter: 2006Q4

REPORT INFORMATION
  Report Type: 
  Country: None (occurrence: None)
  Receive Date: 20061108
  Receipt Date: 20061026
  Transmission Date: 20070319
  Serious: Yes (Other)
  Sender: FDA-Public Use
  Company Number: PHHO2006JP17949

PATIENT
  Age: 76 Year
  Sex: Female

DRUGS (5)
  1. ALMARL [Concomitant]
     Indication: HYPERTENSION
  2. LASIX [Concomitant]
     Indication: HYPERTENSION
  3. LIPITOR [Concomitant]
     Indication: HYPERCHOLESTEROLAEMIA
  4. DIOVAN [Suspect]
     Indication: HYPERTENSION
     Dosage: 40 MG, QD
     Route: 048
     Dates: start: 20030212, end: 20040622
  5. DIOVAN [Suspect]
     Dosage: 80 MG, QD
     Route: 048
     Dates: start: 20040623

REACTIONS (1)
  - CHRONIC LYMPHOCYTIC LEUKAEMIA [None]
